FAERS Safety Report 8257275-0 (Version None)
Quarter: 2012Q2

REPORT INFORMATION
  Report Type: 
  Country: None (occurrence: None)
  Receive Date: 20120403
  Receipt Date: 20120330
  Transmission Date: 20120825
  Serious: No
  Sender: FDA-Public Use
  Company Number: US-B.I. PHARMACEUTICALS,INC./RIDGEFIELD-2012-BP-03765BP

PATIENT
  Sex: Female
  Weight: 125 kg

DRUGS (13)
  1. LEVOTHYROXINE SODIUM [Concomitant]
     Indication: HYPOTHYROIDISM
     Dosage: 200 MG
  2. FUROSEMIDE [Concomitant]
     Indication: HYPERTENSION
     Dosage: 40 MG
  3. ZOLPIDEM [Concomitant]
     Indication: INSOMNIA
     Dosage: 10 G
  4. CA 600G W VIT D [Concomitant]
  5. WARFARIN SODIUM [Concomitant]
     Indication: ATRIAL FIBRILLATION
     Dosage: 5 MG
  6. AMLODIPINE [Concomitant]
     Indication: HYPERTENSION
     Dosage: 10 MG
  7. PRADAXA [Suspect]
     Indication: ATRIAL FIBRILLATION
     Route: 048
     Dates: start: 20111201, end: 20111214
  8. LOSARTINE [Concomitant]
     Indication: HYPERTENSION
     Dosage: 10 MG
  9. OMEPRAZOLE [Concomitant]
     Indication: HIATUS HERNIA
  10. VESICARE [Concomitant]
     Indication: INCONTINENCE
     Dosage: 10 MG
     Route: 048
  11. METOPROLOL TARTRATE [Concomitant]
     Indication: HYPERTENSION
     Dosage: 100 MG
  12. FUROSEMIDE [Concomitant]
     Indication: OEDEMA
  13. CRESTOR [Concomitant]
     Indication: HYPERCHOLESTEROLAEMIA
     Dosage: 10 MG

REACTIONS (3)
  - DYSPHAGIA [None]
  - OESOPHAGITIS ULCERATIVE [None]
  - ODYNOPHAGIA [None]
